FAERS Safety Report 9498766 (Version 1)
Quarter: 2013Q3

REPORT INFORMATION
  Report Type: Spontaneous
  Country: US (occurrence: None)
  Receive Date: 20130830
  Receipt Date: 20130830
  Transmission Date: 20140515
  Serious: Yes (Other)
  Sender: FDA-Public Use
  Company Number: NPIL/SEV/H/2013/71

PATIENT
  Age: 12 Year
  Sex: Female

DRUGS (1)
  1. SEVOFLURANE [Suspect]
     Indication: GENERAL ANAESTHESIA
     Dosage: UNKNOWN, INHALATION
     Route: 055

REACTIONS (4)
  - Dystonia [None]
  - Encephalopathy [None]
  - Lactic acidosis [None]
  - Coma [None]
